FAERS Safety Report 6977576-3 (Version None)
Quarter: 2010Q3

REPORT INFORMATION
  Report Type: 
  Country: None (occurrence: None)
  Receive Date: 20100913
  Receipt Date: 20100903
  Transmission Date: 20110219
  Serious: Yes (Hospitalization)
  Sender: FDA-Public Use
  Company Number: US-BIOGENIDEC-2010BI006521

PATIENT
  Age: 44 Year
  Sex: Female
  Weight: 71 kg

DRUGS (14)
  1. TYSABRI [Suspect]
     Indication: MULTIPLE SCLEROSIS
     Route: 042
     Dates: start: 20070315
  2. METHOTREXATE [Concomitant]
     Indication: PSORIATIC ARTHROPATHY
     Route: 048
     Dates: start: 20080519, end: 20091001
  3. ARAVA [Concomitant]
     Dates: start: 20090614, end: 20091001
  4. MOBIC [Concomitant]
  5. METHYLPREDNISOLONE [Concomitant]
     Indication: MULTIPLE SCLEROSIS RELAPSE
     Route: 042
     Dates: start: 20090916, end: 20090918
  6. CRANBERRY [Concomitant]
     Route: 048
  7. CLARITIN-D [Concomitant]
     Route: 048
  8. LOVAZA [Concomitant]
     Route: 048
  9. TYLENOL [Concomitant]
     Route: 048
  10. VITAMIN D [Concomitant]
     Route: 048
  11. K-DUR [Concomitant]
     Route: 048
  12. FOLIC ACID [Concomitant]
     Route: 048
  13. KLOR-CON [Concomitant]
     Route: 048
  14. ATENOLOL [Concomitant]
     Route: 048

REACTIONS (4)
  - COOMBS NEGATIVE HAEMOLYTIC ANAEMIA [None]
  - DIZZINESS [None]
  - NAUSEA [None]
  - VOMITING [None]
